FAERS Safety Report 23687358 (Version 1)
Quarter: 2024Q1

REPORT INFORMATION
  Report Type: Spontaneous
  Country: US (occurrence: US)
  Receive Date: 20240329
  Receipt Date: 20240329
  Transmission Date: 20240410
  Serious: Yes (Hospitalization)
  Sender: FDA-Public Use
  Company Number: US-PFIZER INC-PV202300189673

PATIENT
  Age: 50 Year
  Sex: Female
  Weight: 80.272 kg

DRUGS (1)
  1. DEPO-PROVERA [Suspect]
     Active Substance: MEDROXYPROGESTERONE ACETATE
     Indication: Contraception
     Dosage: UNK
     Dates: start: 20130402

REACTIONS (5)
  - Femur fracture [Not Recovered/Not Resolved]
  - Muscle disorder [Unknown]
  - Myofascial pain syndrome [Unknown]
  - Radicular pain [Unknown]
  - Dehydration [Unknown]
